FAERS Safety Report 4457902-X (Version None)
Quarter: 2004Q3

REPORT INFORMATION
  Report Type: 
  Country: None (occurrence: None)
  Receive Date: 20040917
  Receipt Date: 20040608
  Transmission Date: 20050211
  Serious: Yes (Congenital Anomaly)
  Sender: FDA-Public Use
  Company Number: US-JNJFOC-20040602511

PATIENT
  Sex: Male

DRUGS (1)
  1. TOPAMAX [Suspect]
     Indication: MATERNAL DRUGS AFFECTING FOETUS
     Dosage: 1200 MG, TRANSPLACENTAL
     Route: 064

REACTIONS (1)
  - HYPOSPADIAS [None]
